FAERS Safety Report 18245810 (Version 1)
Quarter: 2020Q3

REPORT INFORMATION
  Report Type: Other
  Country: ZA (occurrence: ZA)
  Receive Date: 20200909
  Receipt Date: 20200909
  Transmission Date: 20201103
  Serious: Yes (Other)
  Sender: FDA-Public Use
  Company Number: ZA-ROCHE-2673239

PATIENT
  Sex: Male

DRUGS (1)
  1. MABTHERA [Suspect]
     Active Substance: RITUXIMAB
     Indication: RHEUMATOID ARTHRITIS
     Dosage: FREQUENCY: DAY 1 AND DAY 15
     Route: 042
     Dates: start: 201306

REACTIONS (1)
  - Multiple sclerosis relapse [Unknown]

NARRATIVE: CASE EVENT DATE: 2018
